FAERS Safety Report 14150827 (Version 1)
Quarter: 2017Q4

REPORT INFORMATION
  Report Type: Spontaneous
  Country: GB (occurrence: GB)
  Receive Date: 20171102
  Receipt Date: 20171102
  Transmission Date: 20180321
  Serious: Yes (Other)
  Sender: FDA-Public Use
  Company Number: GB-CONCORDIA PHARMACEUTICALS INC.-GSH201710-005970

PATIENT
  Age: 88 Year
  Sex: Female
  Weight: 73 kg

DRUGS (17)
  1. DIGOXIN. [Suspect]
     Active Substance: DIGOXIN
     Dates: start: 20170110
  2. ATORVASTATIN [Concomitant]
     Active Substance: ATORVASTATIN
     Dates: start: 20140212
  3. FUROSEMIDE. [Concomitant]
     Active Substance: FUROSEMIDE
     Dosage: EACH MORNING
     Dates: start: 20170105
  4. CLENIL MODULITE [Concomitant]
     Active Substance: BECLOMETHASONE DIPROPIONATE
     Route: 055
     Dates: start: 20170606
  5. CALCIUM CARBONATE. [Concomitant]
     Active Substance: CALCIUM CARBONATE
     Dosage: TAKE ONE TWO OR THREE TIMES A DAY
     Dates: start: 20130109
  6. METFORMIN [Concomitant]
     Active Substance: METFORMIN HYDROCHLORIDE
     Dates: start: 20170131
  7. APIXABAN [Concomitant]
     Active Substance: APIXABAN
     Dates: start: 20170411
  8. CODEINE PHOSPHATE [Concomitant]
     Active Substance: CODEINE PHOSPHATE
     Dosage: TAKE ONE 4 TIMES/DAY WHEN REQUIRED
     Dates: start: 20170919, end: 20170926
  9. LOPERAMIDE [Concomitant]
     Active Substance: LOPERAMIDE
     Dosage: USE AS DIRECTED
     Dates: start: 20170817, end: 20170914
  10. MICONAZOLE. [Concomitant]
     Active Substance: MICONAZOLE
     Dates: start: 20170925, end: 20170930
  11. BISOPROLOL [Concomitant]
     Active Substance: BISOPROLOL
     Dates: start: 20170131
  12. NUTRITIONAL SUPPLEMENT [Concomitant]
     Active Substance: DIETARY SUPPLEMENT
     Dosage: USE AS DIRECTED
     Dates: start: 20170919, end: 20171003
  13. LEVOTHYROXINE. [Concomitant]
     Active Substance: LEVOTHYROXINE
     Dates: start: 20170110
  14. SPASMONAL [Concomitant]
     Dates: start: 20140919
  15. RAMIPRIL. [Concomitant]
     Active Substance: RAMIPRIL
     Dates: start: 20150629
  16. DIORALYTE [Concomitant]
     Active Substance: CITRIC ACID MONOHYDRATE\DEXTROSE\POTASSIUM CATION\SODIUM CHLORIDE
     Dates: start: 20170713, end: 20170719
  17. NUTRITIONAL SUPPLEMENT [Concomitant]
     Active Substance: DIETARY SUPPLEMENT
     Dates: start: 20170801, end: 20170831

REACTIONS (1)
  - Hypokalaemia [Recovered/Resolved]

NARRATIVE: CASE EVENT DATE: 20171009
